FAERS Safety Report 10052126 (Version 2)
Quarter: 2014Q2

REPORT INFORMATION
  Report Type: Spontaneous
  Country: FR (occurrence: FR)
  Receive Date: 20140402
  Receipt Date: 20140402
  Transmission Date: 20141212
  Serious: Yes (Death, Hospitalization, Other)
  Sender: FDA-Public Use
  Company Number: FR-CELGENEUS-056-20785-13022396

PATIENT
  Age: 62 Year
  Sex: Male

DRUGS (6)
  1. THALIDOMIDE [Suspect]
     Indication: PLASMA CELL MYELOMA
     Route: 048
     Dates: start: 201105, end: 201205
  2. REVLIMID [Suspect]
     Indication: PLASMA CELL MYELOMA
     Route: 048
     Dates: start: 2008, end: 200903
  3. CC-4047 [Suspect]
     Indication: PLASMA CELL MYELOMA
     Route: 048
     Dates: start: 201205, end: 201208
  4. ALKERAN [Suspect]
     Indication: PLASMA CELL MYELOMA
     Route: 065
     Dates: start: 201208, end: 201301
  5. CORTANCYL [Suspect]
     Indication: PLASMA CELL MYELOMA
     Route: 065
     Dates: start: 201208, end: 201301
  6. CELLTOP [Suspect]
     Indication: PLASMA CELL MYELOMA
     Route: 065
     Dates: start: 201208, end: 201212

REACTIONS (3)
  - Death [Fatal]
  - Amyloidosis [Unknown]
  - Neuropathy peripheral [Not Recovered/Not Resolved]
